FAERS Safety Report 10376730 (Version 1)
Quarter: 2014Q3

REPORT INFORMATION
  Report Type: Spontaneous
  Country: US (occurrence: None)
  Receive Date: 20140807
  Receipt Date: 20140807
  Transmission Date: 20150326
  Serious: Yes (Hospitalization)
  Sender: FDA-Public Use
  Company Number: 1380006

PATIENT
  Age: 58 Year
  Sex: Male
  Weight: 104.33 kg

DRUGS (6)
  1. INSULIN [Concomitant]
     Active Substance: INSULIN NOS
  2. GABAPENTIN. [Concomitant]
     Active Substance: GABAPENTIN
  3. LISINOPRIL. [Concomitant]
     Active Substance: LISINOPRIL
  4. FENOFIBRATE. [Concomitant]
     Active Substance: FENOFIBRATE
  5. ETHOSUXIMIDE. [Concomitant]
     Active Substance: ETHOSUXIMIDE
  6. SOOTHANOL X2 [Suspect]
     Active Substance: CAPSAICIN\MENTHOL
     Dosage: TOPICAL EVERY FEW DAYS
     Route: 061
     Dates: start: 20140315, end: 20140406

REACTIONS (4)
  - Dyspepsia [None]
  - Pancreatitis [None]
  - Abdominal pain [None]
  - Headache [None]

NARRATIVE: CASE EVENT DATE: 20140404
